FAERS Safety Report 4393998-1 (Version None)
Quarter: 2004Q3

REPORT INFORMATION
  Report Type: 
  Country: None (occurrence: None)
  Receive Date: 20040709
  Receipt Date: 20040630
  Transmission Date: 20050211
  Serious: Yes (Hospitalization)
  Sender: FDA-Public Use
  Company Number: US-MERCK-0407USA00123

PATIENT
  Age: 53 Year
  Sex: Male

DRUGS (4)
  1. ZETIA [Suspect]
     Route: 048
     Dates: end: 20040630
  2. TRICOR [Concomitant]
     Route: 065
  3. METFORMIN [Concomitant]
     Route: 065
  4. AVANDIA [Concomitant]
     Route: 065

REACTIONS (2)
  - DIARRHOEA [None]
  - PANCREATITIS [None]
